FAERS Safety Report 4437283-8 (Version None)
Quarter: 2004Q3

REPORT INFORMATION
  Report Type: 
  Country: None (occurrence: None)
  Receive Date: 20040726
  Receipt Date: 20040329
  Transmission Date: 20050211
  Serious: No
  Sender: FDA-Public Use
  Company Number: USA040363391

PATIENT
  Age: 73 Year
  Sex: Female

DRUGS (5)
  1. FORTEO [Suspect]
     Indication: OSTEOPOROSIS
     Dates: start: 20040201
  2. EVISTA [Concomitant]
  3. CALCIUM CARBONATE [Concomitant]
  4. MULTIVITAMIN [Concomitant]
  5. VITAMIN E [Concomitant]

REACTIONS (2)
  - BACK PAIN [None]
  - POLLAKIURIA [None]
